FAERS Safety Report 24211038 (Version 1)
Quarter: 2024Q3

REPORT INFORMATION
  Report Type: Spontaneous
  Country: CA (occurrence: CA)
  Receive Date: 20240814
  Receipt Date: 20240814
  Transmission Date: 20241016
  Serious: Yes (Life-Threatening, Hospitalization, Disabling, Other)
  Sender: OTSUKA
  Company Number: CA-OTSUKA-2024_022225

PATIENT
  Age: 27 Year
  Sex: Female
  Weight: 56.69 kg

DRUGS (4)
  1. ABILIFY [Suspect]
     Active Substance: ARIPIPRAZOLE
     Indication: Product used for unknown indication
     Dosage: 8 MG, QD
     Route: 048
  2. CANNABIS SATIVA SUBSP. INDICA TOP [Concomitant]
     Active Substance: CANNABIS SATIVA SUBSP. INDICA TOP
     Indication: Product used for unknown indication
     Dosage: UNK
     Route: 065
  3. EFFEXOR [Concomitant]
     Active Substance: VENLAFAXINE HYDROCHLORIDE
     Indication: Product used for unknown indication
     Dosage: UNK
     Route: 065
  4. FENTANYL [Concomitant]
     Active Substance: FENTANYL\FENTANYL CITRATE
     Indication: Product used for unknown indication
     Dosage: UNK
     Route: 065

REACTIONS (7)
  - Monoplegia [Recovering/Resolving]
  - Head injury [Recovering/Resolving]
  - Dysstasia [Recovering/Resolving]
  - Arrhythmia [Recovering/Resolving]
  - Loss of consciousness [Recovering/Resolving]
  - Myocardial infarction [Recovering/Resolving]
  - Palpitations [Recovering/Resolving]
